FAERS Safety Report 13244317 (Version 2)
Quarter: 2017Q1

REPORT INFORMATION
  Report Type: Report from Study
  Country: DE (occurrence: DE)
  Receive Date: 20170217
  Receipt Date: 20170302
  Transmission Date: 20170428
  Serious: Yes (Hospitalization)
  Sender: FDA-Public Use
  Company Number: DE-AMGEN-DEUCT2017024316

PATIENT
  Age: 45 Year
  Sex: Male
  Weight: 100 kg

DRUGS (3)
  1. ETANERCEPT [Suspect]
     Active Substance: ETANERCEPT
     Indication: SPONDYLITIS
     Dosage: 25 MG, 2X/WEEK, INJECTION
     Route: 065
     Dates: start: 20070621
  2. L-THYROXIN [Concomitant]
     Active Substance: LEVOTHYROXINE SODIUM
     Indication: THYROID DISORDER
     Dosage: 1X/DAY
     Dates: start: 20121019
  3. IBUPROFEN. [Concomitant]
     Active Substance: IBUPROFEN
     Indication: PAIN
     Dosage: 800 RETARD, AS NEEDED (AT NIGHT), 800 (NO UNIT) AS NEEDED AT DAY
     Dates: start: 20070111

REACTIONS (1)
  - Dacryocystitis [Recovered/Resolved]

NARRATIVE: CASE EVENT DATE: 20150615
